APPROVED DRUG PRODUCT: CARISOPRODOL
Active Ingredient: CARISOPRODOL
Strength: 350MG
Dosage Form/Route: TABLET;ORAL
Application: A089390 | Product #001
Applicant: PIONEER PHARMACEUTICALS INC
Approved: Oct 13, 1988 | RLD: No | RS: No | Type: DISCN